FAERS Safety Report 4678245-5 (Version None)
Quarter: 2005Q2

REPORT INFORMATION
  Report Type: 
  Country: None (occurrence: None)
  Receive Date: 20050527
  Receipt Date: 20050511
  Transmission Date: 20051028
  Serious: Yes (Death, Hospitalization)
  Sender: FDA-Public Use
  Company Number: 2005PL000034

PATIENT
  Age: 57 Year
  Sex: Female

DRUGS (3)
  1. AZATHIOPRINE [Suspect]
     Indication: PROPHYLAXIS AGAINST TRANSPLANT REJECTION
     Dosage: PO
     Route: 048
  2. CYCLOSPORINE [Suspect]
     Dosage: PO
     Route: 048
  3. PREDNISONE [Concomitant]

REACTIONS (7)
  - HAEMODIALYSIS [None]
  - LUNG INFILTRATION [None]
  - METASTASES TO KIDNEY [None]
  - METASTASES TO SKIN [None]
  - METASTATIC MALIGNANT MELANOMA [None]
  - PLEURAL EFFUSION [None]
  - THERAPY NON-RESPONDER [None]
